FAERS Safety Report 7767897-9 (Version None)
Quarter: 2011Q3

REPORT INFORMATION
  Report Type: 
  Country: None (occurrence: None)
  Receive Date: 20110922
  Receipt Date: 20100930
  Transmission Date: 20111222
  Serious: No
  Sender: FDA-Public Use
  Company Number: US-ASTRAZENECA-2010SE46448

PATIENT
  Sex: Male

DRUGS (8)
  1. SYMBICORT [Concomitant]
     Dosage: 160/4.5 UG
     Route: 055
  2. LEXAPRO [Concomitant]
  3. ATROVENT [Concomitant]
  4. ATIVAN [Concomitant]
  5. SEROQUEL [Suspect]
     Route: 048
  6. ALBUTEROL [Concomitant]
  7. SIMVASTATIN [Concomitant]
  8. LISINOPRIL [Concomitant]

REACTIONS (1)
  - DRUG HYPERSENSITIVITY [None]
